FAERS Safety Report 22754260 (Version 8)
Quarter: 2024Q4

REPORT INFORMATION
  Report Type: Report from Study
  Country: CA (occurrence: CA)
  Receive Date: 20230727
  Receipt Date: 20241203
  Transmission Date: 20250115
  Serious: Yes (Other)
  Sender: CELLTRION
  Company Number: CA-CELLTRION INC.-2023CA014845

PATIENT

DRUGS (11)
  1. ADALIMUMAB-AATY [Suspect]
     Active Substance: ADALIMUMAB-AATY
     Indication: Rheumatoid arthritis
     Dosage: 40 MG EVERY 2 WEEKS/ 1 EVERY 2 WEEKS
     Route: 058
     Dates: start: 20230716
  2. ADALIMUMAB-AATY [Suspect]
     Active Substance: ADALIMUMAB-AATY
     Dosage: 40 MG EVERY 2 WEEKS
     Route: 058
     Dates: start: 20230818
  3. ADALIMUMAB-AATY [Suspect]
     Active Substance: ADALIMUMAB-AATY
     Dosage: 40 MG EVERY 2 WEEKS
     Route: 058
     Dates: start: 20230914
  4. ADALIMUMAB-AATY [Suspect]
     Active Substance: ADALIMUMAB-AATY
     Dosage: 40 MG. EVERY 10 DAYS
     Route: 058
  5. ADALIMUMAB-AATY [Suspect]
     Active Substance: ADALIMUMAB-AATY
     Dosage: 40 MG, EVERY 10 DAYS
     Route: 058
     Dates: start: 20240812
  6. ADALIMUMAB-AATY [Suspect]
     Active Substance: ADALIMUMAB-AATY
     Dosage: 40 MG, EVERY 10 DAYS
     Route: 058
     Dates: start: 20240822
  7. ADALIMUMAB-AATY [Suspect]
     Active Substance: ADALIMUMAB-AATY
     Dosage: 40 MG, EVERY 10 DAYS
     Route: 058
     Dates: start: 20240906
  8. ADALIMUMAB-AATY [Suspect]
     Active Substance: ADALIMUMAB-AATY
     Dosage: 40 MG WEEKLY, STARTED ON 16JUL2024 THEN QWEEKLY
     Route: 058
     Dates: start: 20240716
  9. METHOTREXATE [Concomitant]
     Active Substance: METHOTREXATE
     Dosage: 20MG OD
     Dates: start: 2022
  10. METHOTREXATE [Concomitant]
     Active Substance: METHOTREXATE
     Dosage: 25 MG WEEKLY/ 1 EVERY 1 WEEK
     Route: 058
     Dates: start: 2022
  11. METHOTREXATE [Concomitant]
     Active Substance: METHOTREXATE
     Dosage: 20 MG

REACTIONS (20)
  - Rheumatoid arthritis [Not Recovered/Not Resolved]
  - Fibromyalgia [Not Recovered/Not Resolved]
  - Device malfunction [Recovered/Resolved]
  - Chest pain [Recovered/Resolved]
  - Dyspnoea [Recovered/Resolved]
  - Hypoaesthesia [Recovered/Resolved]
  - Pneumonia fungal [Unknown]
  - Exposure via skin contact [Recovered/Resolved]
  - Accidental exposure to product [Recovered/Resolved]
  - Aphonia [Unknown]
  - Dysstasia [Not Recovered/Not Resolved]
  - Loss of personal independence in daily activities [Unknown]
  - Gait inability [Unknown]
  - Peripheral swelling [Not Recovered/Not Resolved]
  - Sinusitis [Not Recovered/Not Resolved]
  - Asthma [Not Recovered/Not Resolved]
  - Bronchitis [Not Recovered/Not Resolved]
  - Intentional product use issue [Unknown]
  - Therapeutic response shortened [Not Recovered/Not Resolved]
  - Intentional dose omission [Unknown]

NARRATIVE: CASE EVENT DATE: 20230718
